FAERS Safety Report 10710872 (Version 3)
Quarter: 2015Q1

REPORT INFORMATION
  Report Type: Spontaneous
  Country: RO (occurrence: None)
  Receive Date: 20150113
  Receipt Date: 20150204
  Transmission Date: 20150721
  Serious: Yes (Other)
  Sender: FDA-Public Use
  Company Number: 2015-10178

PATIENT
  Age: 78 Year
  Sex: Male

DRUGS (1)
  1. EYLEA [Suspect]
     Active Substance: AFLIBERCEPT
     Indication: NEOVASCULAR AGE-RELATED MACULAR DEGENERATION
     Route: 031
     Dates: start: 20141023, end: 20141023

REACTIONS (8)
  - Off label use [None]
  - Detachment of retinal pigment epithelium [None]
  - Maculopathy [None]
  - Age-related macular degeneration [None]
  - Visual acuity reduced [None]
  - Retinal detachment [None]
  - Disease recurrence [None]
  - Retinal tear [None]

NARRATIVE: CASE EVENT DATE: 20131223
